FAERS Safety Report 8955278 (Version 1)
Quarter: 2012Q4

REPORT INFORMATION
  Report Type: 
  Country: TR (occurrence: TR)
  Receive Date: 20121207
  Receipt Date: 20121207
  Transmission Date: 20130627
  Serious: Yes (Other)
  Sender: FDA-Public Use
  Company Number: TR-009507513-1212TUR002017

PATIENT
  Age: 74 Year
  Sex: Female
  Weight: 58 kg

DRUGS (3)
  1. INTRONA [Suspect]
     Indication: NEUROENDOCRINE TUMOUR
     Dosage: Strength: 10 MIU
     Route: 058
     Dates: start: 20120803, end: 20120810
  2. INTRONA [Suspect]
     Dosage: Strength: 5 MIU
     Route: 058
     Dates: start: 20121003, end: 20121005
  3. INTRONA [Suspect]
     Dosage: Strength: 5 MIU
     Route: 058
     Dates: start: 20121013, end: 20121106

REACTIONS (5)
  - Intestinal haemorrhage [Recovered/Resolved]
  - Anxiety [Recovered/Resolved]
  - Agitation [Recovered/Resolved]
  - Anxiety [Recovered/Resolved]
  - Agitation [Recovered/Resolved]
